FAERS Safety Report 15504495 (Version 1)
Quarter: 2018Q4

REPORT INFORMATION
  Report Type: Spontaneous
  Country: FR (occurrence: FR)
  Receive Date: 20181016
  Receipt Date: 20181016
  Transmission Date: 20190205
  Serious: Yes (Hospitalization)
  Sender: FDA-Public Use
  Company Number: FR-SA-2018SA278148

PATIENT
  Age: 88 Year
  Sex: Female
  Weight: 64 kg

DRUGS (8)
  1. PARACETAMOL [Concomitant]
     Active Substance: ACETAMINOPHEN
     Dosage: 1000 MG, QD
     Route: 048
  2. PAROXETINE HYDROCHLORIDE. [Suspect]
     Active Substance: PAROXETINE HYDROCHLORIDE
     Indication: DEPRESSION
     Dosage: 10 MG, QD
     Route: 048
     Dates: start: 20161105, end: 20161113
  3. PHLOROGLUCINOL [Concomitant]
     Active Substance: PHLOROGLUCINOL
     Dosage: 160 MG, QD
     Route: 048
  4. PANTOPRAZOLE [Concomitant]
     Active Substance: PANTOPRAZOLE
     Dosage: 40 MG, QD
     Route: 048
  5. BIPRETERAX [INDAPAMIDE;PERINDOPRIL ARGININE] [Suspect]
     Active Substance: INDAPAMIDE\PERINDOPRIL ARGININE
     Indication: HYPERTENSION
     Dosage: UNK UNK, UNK
     Route: 048
  6. ALPRAZOLAM. [Concomitant]
     Active Substance: ALPRAZOLAM
     Dosage: 0.5 MG, QD
     Route: 048
  7. SIMVASTATINE [Concomitant]
     Active Substance: SIMVASTATIN
     Dosage: 10 MG, QD
     Route: 048
  8. IRBESARTAN. [Suspect]
     Active Substance: IRBESARTAN
     Indication: HYPERTENSION
     Dosage: 300 MG, QD
     Route: 048

REACTIONS (2)
  - Dehydration [Recovered/Resolved]
  - Hyponatraemia [Recovered/Resolved]

NARRATIVE: CASE EVENT DATE: 20161113
